FAERS Safety Report 6902398-9 (Version None)
Quarter: 2010Q3

REPORT INFORMATION
  Report Type: 
  Country: None (occurrence: None)
  Receive Date: 20100803
  Receipt Date: 20080520
  Transmission Date: 20110219
  Serious: No
  Sender: FDA-Public Use
  Company Number: US-PFIZER INC-2008043569

PATIENT
  Sex: Female

DRUGS (9)
  1. LYRICA [Suspect]
     Indication: EPILEPSY
  2. PROZAC [Concomitant]
  3. DIAZEPAM [Concomitant]
  4. IBUPROFEN [Concomitant]
  5. LORTAB [Concomitant]
  6. NAPROXEN [Concomitant]
  7. ROBAXIN [Concomitant]
  8. BUPRENORPHINE HCL AND NALOXONE HCL [Concomitant]
  9. SEPTRA [Concomitant]

REACTIONS (1)
  - OVERDOSE [None]
